FAERS Safety Report 6022414-9 (Version None)
Quarter: 2008Q4

REPORT INFORMATION
  Report Type: 
  Country: None (occurrence: None)
  Receive Date: 20081230
  Receipt Date: 20081226
  Transmission Date: 20090506
  Serious: Yes (Hospitalization, Other)
  Sender: FDA-Public Use
  Company Number: US-BAYER-200833832NA

PATIENT
  Age: 15 Year
  Sex: Female

DRUGS (13)
  1. CAMPATH [Suspect]
     Indication: RENAL TRANSPLANT
     Dosage: AS USED: 12.2 MG
     Route: 042
     Dates: start: 20050222, end: 20050222
  2. CAMPATH [Suspect]
     Dosage: AS USED: 12.2 MG
     Route: 042
     Dates: start: 20050224, end: 20050224
  3. CELLCEPT [Concomitant]
  4. BACTRIM [Concomitant]
  5. NORVASC [Concomitant]
  6. VALGANCICLOVIR HCL [Concomitant]
  7. SODIUM BICARBONATE [Concomitant]
  8. EPOGEN [Concomitant]
  9. IRON [Concomitant]
  10. NYSTATIN [Concomitant]
  11. RAPAMYCIN [Concomitant]
  12. PROGRAF [Concomitant]
     Dates: start: 20050223
  13. IMURAN [Concomitant]

REACTIONS (5)
  - GENITAL LESION [None]
  - LEUKOPENIA [None]
  - NEUTROPENIA [None]
  - ORAL DISORDER [None]
  - PYREXIA [None]
